FAERS Safety Report 8360694-5 (Version None)
Quarter: 2012Q2

REPORT INFORMATION
  Report Type: 
  Country: None (occurrence: None)
  Receive Date: 20120515
  Receipt Date: 20120509
  Transmission Date: 20120825
  Serious: Yes (Hospitalization)
  Sender: FDA-Public Use
  Company Number: JP-ACTELION-A-CH2010-38766

PATIENT
  Sex: Female
  Weight: 44 kg

DRUGS (9)
  1. TRACLEER [Suspect]
     Dosage: 62.5 MG, QD
     Route: 048
     Dates: start: 20110201, end: 20110522
  2. ALFACALCIDOL [Concomitant]
  3. REBAMIPIDE [Concomitant]
  4. FUROSEMIDE [Concomitant]
  5. RISEDRONATE SODIUM [Concomitant]
  6. TRACLEER [Suspect]
     Indication: PULMONARY ARTERIAL HYPERTENSION
     Dosage: 62.5 MG, QD
     Route: 048
     Dates: start: 20091128, end: 20100511
  7. MENATETRENONE [Concomitant]
  8. SARPOGRELATE HYDROCHLORIDE [Concomitant]
  9. MONTELUKAST SODIUM [Concomitant]

REACTIONS (3)
  - CONDITION AGGRAVATED [None]
  - DIZZINESS [None]
  - SKIN ULCER [None]
